FAERS Safety Report 19372342 (Version 1)
Quarter: 2021Q2

REPORT INFORMATION
  Report Type: Spontaneous
  Country: US (occurrence: US)
  Receive Date: 20210604
  Receipt Date: 20210604
  Transmission Date: 20210717
  Serious: No
  Sender: FDA-Public Use
  Company Number: US-JNJFOC-20210545420

PATIENT

DRUGS (1)
  1. VISINE A MULTI?ACTION EYE ALLERGY RELIEF [Suspect]
     Active Substance: NAPHAZOLINE HYDROCHLORIDE\PHENIRAMINE MALEATE
     Indication: EYE ALLERGY
     Dosage: ONE DROP IN EACH EYE ONLY ONCE
     Route: 047
     Dates: start: 20210519

REACTIONS (4)
  - Vision blurred [Not Recovered/Not Resolved]
  - Mydriasis [Recovered/Resolved]
  - Headache [Recovered/Resolved]
  - Discomfort [Recovered/Resolved]

NARRATIVE: CASE EVENT DATE: 20210519
